FAERS Safety Report 9214942 (Version 1)
Quarter: 2013Q2

REPORT INFORMATION
  Report Type: Report from Study
  Country: CA (occurrence: CA)
  Receive Date: 20130405
  Receipt Date: 20130405
  Transmission Date: 20140414
  Serious: Yes (Other)
  Sender: FDA-Public Use
  Company Number: CA-AMGEN-US319406

PATIENT
  Age: 86 Year
  Sex: Male

DRUGS (11)
  1. DENOSUMAB [Suspect]
     Indication: PROSTATE CANCER
     Dosage: UNK UNK, QMO
     Route: 058
     Dates: start: 20061031, end: 20070612
  2. ENALAPRIL MALEATE [Concomitant]
     Dosage: 2.5 MG, QD
     Dates: start: 2000
  3. TERAZOSIN HYDROCHLORIDE [Concomitant]
     Dosage: 5 MG, QD
     Dates: start: 1996
  4. LORAZEPAM [Concomitant]
     Dosage: .5 MG, QD
     Dates: start: 2000
  5. PSYLLIUM HYDROPHILIC MUCILLOID [Concomitant]
     Dosage: UNK UNK, BID
     Dates: start: 1986
  6. BETAHISTINE HYDROCHLORIDE [Concomitant]
     Dosage: 24 MG, BID
     Dates: start: 20060301
  7. ACETAMINOPHEN [Concomitant]
     Dosage: 650 MG, PRN
  8. ERGOCALCIFEROL [Concomitant]
     Dosage: 400 IU, QD
     Dates: start: 20061205
  9. CALCIUM [Concomitant]
     Dosage: 500 MG, QD
     Dates: start: 20061205
  10. ACETYLSALICYLIC ACID [Concomitant]
     Dosage: 81 MG, QD
     Dates: start: 20070512
  11. GOSERELIN [Concomitant]
     Dosage: 10.8 MG, Q3MO
     Route: 058
     Dates: start: 200502

REACTIONS (1)
  - Pain in jaw [Recovered/Resolved]
